FAERS Safety Report 5507218-5 (Version None)
Quarter: 2007Q4

REPORT INFORMATION
  Report Type: 
  Country: None (occurrence: None)
  Receive Date: 20071015
  Receipt Date: 20071008
  Transmission Date: 20080405
  Serious: Yes (Life-Threatening)
  Sender: FDA-Public Use
  Company Number: THYM-11542

PATIENT
  Age: 55 Year
  Sex: Male
  Weight: 80 kg

DRUGS (3)
  1. THYMOGLOBULIN [Suspect]
     Indication: LIVER TRANSPLANT
     Dosage: 1.5 MG/KG QD IV
     Route: 042
     Dates: start: 20070918, end: 20070919
  2. LEVOPHED [Concomitant]
  3. VASOPRESSIN [Concomitant]

REACTIONS (3)
  - HYPOTENSION [None]
  - PYREXIA [None]
  - TACHYCARDIA [None]
